FAERS Safety Report 8131357 (Version 3)
Quarter: 2013Q1

REPORT INFORMATION
  Report Type: Spontaneous
  Country: US (occurrence: US)
  Receive Date: 20110912
  Receipt Date: 20130325
  Transmission Date: 20140127
  Serious: Yes (Hospitalization)
  Sender: FDA-Public Use
  Company Number: US-GLAXOSMITHKLINE-A0897094A

PATIENT
  Age: 42 Year
  Sex: Female

DRUGS (2)
  1. AVANDAMET [Suspect]
     Indication: DIABETES MELLITUS
     Route: 048
     Dates: start: 20040109, end: 20060901
  2. AVANDIA [Suspect]
     Indication: DIABETES MELLITUS
     Route: 048
     Dates: start: 2006

REACTIONS (4)
  - Myocardial infarction [Not Recovered/Not Resolved]
  - Coronary arterial stent insertion [Unknown]
  - Dyspnoea [Unknown]
  - Fluid retention [Unknown]
